FAERS Safety Report 11260799 (Version 1)
Quarter: 2015Q3

REPORT INFORMATION
  Report Type: Spontaneous
  Country: ES (occurrence: ES)
  Receive Date: 20150710
  Receipt Date: 20150710
  Transmission Date: 20151125
  Serious: Yes (Hospitalization)
  Sender: FDA-Public Use
  Company Number: PHHY2015ES080421

PATIENT
  Age: 51 Year
  Sex: Female

DRUGS (2)
  1. CREMOPHOR EL [Suspect]
     Active Substance: POLYOXYL 35 CASTOR OIL
     Indication: PRODUCT USED FOR UNKNOWN INDICATION
     Route: 065
  2. PACLITAXEL. [Suspect]
     Active Substance: PACLITAXEL
     Indication: BREAST CANCER
     Route: 065

REACTIONS (5)
  - Disinhibition [Recovered/Resolved]
  - Aggression [Recovered/Resolved]
  - Status epilepticus [Recovered/Resolved]
  - Disorientation [Recovered/Resolved]
  - Personality change [Recovered/Resolved]
